FAERS Safety Report 10475013 (Version 2)
Quarter: 2014Q4

REPORT INFORMATION
  Report Type: Report from Study
  Country: JP (occurrence: JP)
  Receive Date: 20140925
  Receipt Date: 20141016
  Transmission Date: 20150528
  Serious: Yes (Death, Hospitalization, Other)
  Sender: FDA-Public Use
  Company Number: JP-BRISTOL-MYERS SQUIBB COMPANY-21430343

PATIENT
  Age: 86 Year
  Sex: Female
  Weight: 38.1 kg

DRUGS (2)
  1. ELIQUIS [Suspect]
     Active Substance: APIXABAN
     Indication: THROMBOSIS PROPHYLAXIS
     Dosage: TABS
     Route: 048
     Dates: start: 20131128, end: 20140710
  2. HANP [Concomitant]
     Active Substance: CARPERITIDE

REACTIONS (2)
  - Cardiac failure chronic [Fatal]
  - Pneumonia aspiration [Fatal]

NARRATIVE: CASE EVENT DATE: 20140519
